FAERS Safety Report 6812199-8 (Version None)
Quarter: 2010Q3

REPORT INFORMATION
  Report Type: 
  Country: None (occurrence: None)
  Receive Date: 20100701
  Receipt Date: 20100628
  Transmission Date: 20110219
  Serious: Yes (Hospitalization, Other)
  Sender: FDA-Public Use
  Company Number: US-ELI_LILLY_AND_COMPANY-US200906000834

PATIENT
  Sex: Female
  Weight: 93.424 kg

DRUGS (18)
  1. BYETTA [Suspect]
     Dosage: 5 UG, 2/D
     Route: 058
     Dates: start: 20060501, end: 20060601
  2. BYETTA [Suspect]
     Dosage: UNK, UNKNOWN
     Dates: start: 20071120, end: 20071125
  3. METFORMIN HCL [Concomitant]
     Indication: DIABETES MELLITUS
  4. AMBIEN CR [Concomitant]
     Indication: INSOMNIA
  5. STRATTERA [Concomitant]
     Indication: ATTENTION DEFICIT/HYPERACTIVITY DISORDER
  6. CELEBREX [Concomitant]
     Indication: INFLAMMATION
  7. INSULIN [Concomitant]
     Indication: DIABETES MELLITUS
  8. CORTAL [Concomitant]
     Indication: INFLAMMATION
  9. ZOLOFT [Concomitant]
  10. SERTRALINE HCL [Concomitant]
  11. ESTRADIOL [Concomitant]
  12. SIMVASTATIN [Concomitant]
  13. LYRICA [Concomitant]
  14. SYNTHROID [Concomitant]
  15. SPIRONOLACTONE [Concomitant]
  16. LOVAZA [Concomitant]
  17. CYMBALTA [Concomitant]
  18. CHLORTHALIDONE [Concomitant]

REACTIONS (12)
  - ABDOMINAL PAIN [None]
  - BRADYCARDIA [None]
  - CARDIAC PACEMAKER INSERTION [None]
  - COSTOCHONDRITIS [None]
  - GASTROENTERITIS [None]
  - JOINT SPRAIN [None]
  - LIGAMENT RUPTURE [None]
  - LOSS OF CONSCIOUSNESS [None]
  - OFF LABEL USE [None]
  - PANCREATITIS [None]
  - PANCREATITIS CHRONIC [None]
  - SYNCOPE [None]
